FAERS Safety Report 6161249-3 (Version None)
Quarter: 2009Q2

REPORT INFORMATION
  Report Type: 
  Country: None (occurrence: None)
  Receive Date: 20090421
  Receipt Date: 20090417
  Transmission Date: 20091009
  Serious: No
  Sender: FDA-Public Use
  Company Number: US-B.I. PHARMACEUTICALS,INC./RIDGEFIELD-2009-BP-03228BP

PATIENT
  Age: 61 Year
  Sex: Female

DRUGS (5)
  1. CATAPRES-TTS-1 [Suspect]
     Indication: HYPERTENSION
     Dosage: .1MG
     Route: 061
     Dates: start: 20090306
  2. MICARDIS HCT [Concomitant]
     Indication: BLOOD PRESSURE INCREASED
  3. SYNTHROID [Concomitant]
     Indication: THYROID DISORDER
  4. POTASSIUM CHLORIDE [Concomitant]
  5. XANAX [Concomitant]

REACTIONS (9)
  - APPLICATION SITE ERYTHEMA [None]
  - APPLICATION SITE PRURITUS [None]
  - APPLICATION SITE VESICLES [None]
  - BLOOD PRESSURE INCREASED [None]
  - DRY EYE [None]
  - DRY MOUTH [None]
  - HEADACHE [None]
  - INSOMNIA [None]
  - PALPITATIONS [None]
